FAERS Safety Report 23871685 (Version 2)
Quarter: 2024Q3

REPORT INFORMATION
  Report Type: Spontaneous
  Country: US (occurrence: US)
  Receive Date: 20240519
  Receipt Date: 20240806
  Transmission Date: 20241017
  Serious: No
  Sender: Tarsus Pharmaceuticals
  Company Number: US-TARSUS PHARMACEUTICALS-TSP-US-2024-000155

PATIENT
  Age: 80 Year
  Sex: Female

DRUGS (3)
  1. XDEMVY [Suspect]
     Active Substance: LOTILANER
     Indication: Blepharitis
     Dosage: 1 DROP, BID
     Route: 047
     Dates: start: 20240321, end: 2024
  2. XDEMVY [Suspect]
     Active Substance: LOTILANER
     Dosage: 1 DROP, QD (AT NIGHT)
     Route: 047
     Dates: start: 2024, end: 2024
  3. XDEMVY [Suspect]
     Active Substance: LOTILANER
     Dosage: 1 DROP, QD (AT NIGHT)
     Route: 047
     Dates: start: 2024, end: 20240422

REACTIONS (4)
  - Vision blurred [Recovered/Resolved]
  - Eye irritation [Recovered/Resolved]
  - Dizziness [Recovered/Resolved]
  - Nausea [Recovered/Resolved]

NARRATIVE: CASE EVENT DATE: 20240321
